FAERS Safety Report 9245800 (Version 2)
Quarter: 2013Q3

REPORT INFORMATION
  Report Type: Spontaneous
  Country: US (occurrence: US)
  Receive Date: 20130422
  Receipt Date: 20130724
  Transmission Date: 20140515
  Serious: No
  Sender: FDA-Public Use
  Company Number: US-BRISTOL-MYERS SQUIBB COMPANY-17422692

PATIENT
  Age: 60 Year
  Sex: Female

DRUGS (14)
  1. ELIQUIS [Suspect]
     Indication: ATRIAL FIBRILLATION
     Dosage: TAB
     Route: 048
     Dates: start: 20130204
  2. POTASSIUM CHLORIDE [Concomitant]
     Route: 048
  3. DIGOXIN [Concomitant]
     Route: 048
  4. ATORVASTATIN [Concomitant]
     Route: 048
  5. LASIX [Concomitant]
     Route: 048
  6. LOSARTAN [Concomitant]
     Dosage: TABLET
     Route: 048
  7. FOLIC ACID [Concomitant]
     Dosage: TABLET
     Route: 048
  8. IBUPROFEN [Concomitant]
     Dosage: TAKE 2 TABLET EVERY 6 HRS AS NEEDED WITH FOOD
     Route: 048
  9. DILAUDID [Concomitant]
     Dosage: 1-2 TABLET EVERY 4-6 HOURS AS NEEDED
     Route: 048
  10. NITROGLYCERIN [Concomitant]
     Dosage: ONE PILL VERY 5 MINS X 3 AS DIRECTED
     Route: 060
  11. CALTRATE [Concomitant]
     Dosage: CALTRATE PLUS 600MG CALCIUM-400 UNIT TAB
     Route: 048
  12. VITAMIN B COMPLEX [Concomitant]
     Dosage: TABLET
     Route: 048
  13. VITAMIN B1 [Concomitant]
     Dosage: 1 TABLET IN THE AM
     Route: 048
  14. VITAMIN B12 [Concomitant]
     Dosage: TAKE 1 TABLET IN THE MORNING
     Route: 060

REACTIONS (1)
  - Medication error [Unknown]
